FAERS Safety Report 7721666-4 (Version None)
Quarter: 2011Q3

REPORT INFORMATION
  Report Type: 
  Country: None (occurrence: None)
  Receive Date: 20110831
  Receipt Date: 20110829
  Transmission Date: 20111222
  Serious: Yes (Hospitalization)
  Sender: FDA-Public Use
  Company Number: US-GLAXOSMITHKLINE-A0940956A

PATIENT
  Age: 67 Year
  Sex: Female
  Weight: 55.9 kg

DRUGS (2)
  1. PACLITAXEL [Suspect]
     Indication: MALIGNANT MELANOMA
     Dosage: 80MGM2 CYCLIC
     Route: 042
     Dates: start: 20110722
  2. VOTRIENT [Suspect]
     Indication: MALIGNANT MELANOMA
     Dosage: 400MG TWICE PER DAY
     Dates: start: 20110722

REACTIONS (1)
  - DEHYDRATION [None]
